FAERS Safety Report 14565017 (Version 6)
Quarter: 2020Q1

REPORT INFORMATION
  Report Type: Report from Study
  Country: CN (occurrence: CN)
  Receive Date: 20180223
  Receipt Date: 20200212
  Transmission Date: 20200409
  Serious: Yes (Hospitalization)
  Sender: FDA-Public Use
  Company Number: CN-ROCHE-2073745

PATIENT
  Age: 74 Year
  Sex: Female
  Weight: 46 kg

DRUGS (4)
  1. CISPLATIN. [Suspect]
     Active Substance: CISPLATIN
     Indication: NON-SMALL CELL LUNG CANCER
     Dosage: DATE OF MOST RECENT DOSE OF CISPLATIN (104 MG) PRIOR TO ADVERSE EVENT: 01/OCT/2017
     Route: 042
     Dates: start: 20170727
  2. METOCLOPRAMIDE. [Concomitant]
     Active Substance: METOCLOPRAMIDE
     Indication: PROPHYLAXIS
     Route: 065
     Dates: start: 20171002
  3. ATEZOLIZUMAB. [Suspect]
     Active Substance: ATEZOLIZUMAB
     Indication: NON-SMALL CELL LUNG CANCER
     Dosage: DATE OF MOST RECENT DOSE OF ATEZOLIZUMAB (1200 MG) PRIOR TO THE ADVERSE EVENT: 30/JAN/2018
     Route: 042
     Dates: start: 20171106
  4. GEMCITABINE. [Suspect]
     Active Substance: GEMCITABINE
     Indication: NON-SMALL CELL LUNG CANCER
     Dosage: DATE OF MOST RECENT DOSE OF GEMCITABINE (1400 MG) PRIOR TO THE ADVERSE EVENT: 11/OCT/2017
     Route: 042
     Dates: start: 20170727

REACTIONS (1)
  - Viral myocarditis [Recovered/Resolved]

NARRATIVE: CASE EVENT DATE: 20180211
